FAERS Safety Report 4624057-8 (Version None)
Quarter: 2005Q1

REPORT INFORMATION
  Report Type: 
  Country: None (occurrence: None)
  Receive Date: 20050329
  Receipt Date: 20050316
  Transmission Date: 20050727
  Serious: Yes (Death, Life-Threatening)
  Sender: FDA-Public Use
  Company Number: 2004CG02517

PATIENT
  Age: 64 Year
  Sex: Female
  Weight: 80 kg

DRUGS (5)
  1. IRESSA [Suspect]
     Indication: OVARIAN CANCER
     Dosage: 500 MG DAILY PO
     Route: 048
     Dates: start: 20040220, end: 20041001
  2. PACLITAXEL [Suspect]
     Indication: OVARIAN CANCER
     Dosage: 175 MG/M2 Q3WK IV
     Route: 042
     Dates: start: 20040220, end: 20040716
  3. CARBOPLATIN [Suspect]
     Indication: OVARIAN CANCER
     Dates: start: 20040220, end: 20040716
  4. TAXOL [Concomitant]
  5. CISPLATIN [Concomitant]

REACTIONS (2)
  - MALIGNANT NEOPLASM PROGRESSION [None]
  - MYELODYSPLASTIC SYNDROME [None]
